FAERS Safety Report 4660854-0 (Version None)
Quarter: 2005Q2

REPORT INFORMATION
  Report Type: 
  Country: None (occurrence: None)
  Receive Date: 20050426
  Receipt Date: 20040921
  Transmission Date: 20051028
  Serious: Yes (Other)
  Sender: FDA-Public Use
  Company Number: 25249

PATIENT
  Sex: Female

DRUGS (2)
  1. ALDARA [Suspect]
     Indication: HERPES SIMPLEX
     Dosage: (0.1 SACHET, 1 IN 2 DAY(S)), TOPICAL
     Route: 061
     Dates: start: 20040501, end: 20040501
  2. UNSPECIFIED MIGRAINE MEDICATION (TABLETS) [Suspect]
     Indication: MIGRAINE
     Dosage: ORAL
     Route: 048
     Dates: start: 20040301, end: 20040301

REACTIONS (4)
  - HYPOAESTHESIA [None]
  - MULTIPLE SCLEROSIS [None]
  - PARAESTHESIA [None]
  - VERTIGO [None]
